FAERS Safety Report 4831162-X (Version None)
Quarter: 2005Q4

REPORT INFORMATION
  Report Type: 
  Country: None (occurrence: None)
  Receive Date: 20051114
  Receipt Date: 20051026
  Transmission Date: 20060501
  Serious: Yes (Hospitalization)
  Sender: FDA-Public Use
  Company Number: DE-2005-012020

PATIENT
  Age: 50 Year
  Sex: Female
  Weight: 65 kg

DRUGS (6)
  1. BETASERON [Suspect]
     Indication: MULTIPLE SCLEROSIS
     Dosage: 250 UG, EVERY 2D, SUBCUTANEOUS; 1 AMP, EVERY 2D, SUBCUTANEOUS
     Route: 058
     Dates: start: 20050620, end: 20050620
  2. BETASERON [Suspect]
     Indication: MULTIPLE SCLEROSIS
     Dosage: 250 UG, EVERY 2D, SUBCUTANEOUS; 1 AMP, EVERY 2D, SUBCUTANEOUS
     Route: 058
     Dates: start: 19990401, end: 20050622
  3. BETASERON [Suspect]
     Indication: MULTIPLE SCLEROSIS
     Dosage: 250 UG, EVERY 2D, SUBCUTANEOUS; 1 AMP, EVERY 2D, SUBCUTANEOUS
     Route: 058
     Dates: start: 20051012
  4. ACCUZIDE (QUINAPRIL HYDROCHLORIDE) [Concomitant]
  5. ACETAMINOPHEN [Concomitant]
  6. STILNOX (ZOLPIDEM) [Concomitant]

REACTIONS (6)
  - ANGIONEUROTIC OEDEMA [None]
  - DRUG HYPERSENSITIVITY [None]
  - INJECTION SITE REACTION [None]
  - NONSPECIFIC REACTION [None]
  - OPTIC NEURITIS RETROBULBAR [None]
  - REFUSAL OF TREATMENT BY PATIENT [None]
